FAERS Safety Report 5231341-6 (Version None)
Quarter: 2007Q1

REPORT INFORMATION
  Report Type: 
  Country: None (occurrence: None)
  Receive Date: 20070206
  Receipt Date: 20070126
  Transmission Date: 20070707
  Serious: Yes (Other)
  Sender: FDA-Public Use
  Company Number: US-BRISTOL-MYERS SQUIBB COMPANY-13659404

PATIENT
  Age: 76 Year
  Sex: Male
  Weight: 62 kg

DRUGS (7)
  1. CARDIOLITE [Suspect]
     Route: 042
  2. ASPIRIN [Concomitant]
  3. FOLIC ACID [Concomitant]
  4. VYTORIN [Concomitant]
  5. FOLATE [Concomitant]
  6. B12 [Concomitant]
  7. MULTI-VITAMIN [Concomitant]

REACTIONS (2)
  - ANXIETY [None]
  - BLOOD PRESSURE INCREASED [None]
